FAERS Safety Report 6734994-6 (Version None)
Quarter: 2010Q2

REPORT INFORMATION
  Report Type: 
  Country: None (occurrence: None)
  Receive Date: 20100521
  Receipt Date: 20100512
  Transmission Date: 20101027
  Serious: Yes (Other)
  Sender: FDA-Public Use
  Company Number: US-PFIZER INC-2010037629

PATIENT
  Sex: Male
  Weight: 82.54 kg

DRUGS (4)
  1. GEODON [Suspect]
     Indication: BIPOLAR DISORDER
     Dosage: 160 MG/DAILY
     Dates: start: 20090101, end: 20100101
  2. GEODON [Suspect]
     Indication: MANIA
  3. CELEXA [Concomitant]
     Indication: ANTIDEPRESSANT THERAPY
     Dosage: 2MG/DAILY
  4. KLONOPIN [Concomitant]
     Indication: ANXIETY
     Dosage: 1 MG, 2X/DAY

REACTIONS (8)
  - ABNORMAL BEHAVIOUR [None]
  - ACTIVITIES OF DAILY LIVING IMPAIRED [None]
  - EMOTIONAL DISTRESS [None]
  - FACIAL PALSY [None]
  - MANIA [None]
  - PSYCHOTIC DISORDER [None]
  - TARDIVE DYSKINESIA [None]
  - WITHDRAWAL SYNDROME [None]
